FAERS Safety Report 8862300 (Version 1)
Quarter: 2012Q4

REPORT INFORMATION
  Report Type: Report from Study
  Country: CA (occurrence: CA)
  Receive Date: 20121026
  Receipt Date: 20121026
  Transmission Date: 20130627
  Serious: Yes (Other)
  Sender: FDA-Public Use
  Company Number: CA-JNJFOC-20121009406

PATIENT
  Age: 43 Year
  Sex: Female
  Weight: 47 kg

DRUGS (4)
  1. REMICADE [Suspect]
     Indication: CROHN^S DISEASE
     Dosage: 3rd infusion
     Route: 042
     Dates: start: 20121015
  2. REMICADE [Suspect]
     Indication: CROHN^S DISEASE
     Dosage: 5 mg/kg every 0, 2, 6 and 8 weeks
     Route: 042
     Dates: start: 20120825, end: 20121018
  3. IMURAN [Concomitant]
     Route: 048
  4. ALL OTHER THERAPEUTIC AGENTS [Concomitant]
     Indication: PREMEDICATION
     Route: 042

REACTIONS (4)
  - Paraesthesia [Recovered/Resolved]
  - Throat irritation [Recovered/Resolved]
  - Rash [Recovered/Resolved]
  - Infusion related reaction [Recovered/Resolved]
